FAERS Safety Report 5883729-8 (Version None)
Quarter: 2008Q3

REPORT INFORMATION
  Report Type: 
  Country: None (occurrence: None)
  Receive Date: 20080911
  Receipt Date: 20080903
  Transmission Date: 20090109
  Serious: Yes (Hospitalization)
  Sender: FDA-Public Use
  Company Number: 2008SP018076

PATIENT
  Age: 60 Year
  Sex: Male
  Weight: 76.8 kg

DRUGS (1)
  1. TEMOZOLOMIDE [Suspect]
     Indication: GLIOBLASTOMA MULTIFORME
     Dosage: PO
     Route: 048
     Dates: start: 20070801

REACTIONS (3)
  - CEREBRAL ISCHAEMIA [None]
  - SPEECH DISORDER [None]
  - THROMBOCYTOPENIA [None]
